FAERS Safety Report 5849516-1 (Version None)
Quarter: 2008Q3

REPORT INFORMATION
  Report Type: 
  Country: None (occurrence: None)
  Receive Date: 20080819
  Receipt Date: 20080814
  Transmission Date: 20090109
  Serious: Yes (Hospitalization)
  Sender: FDA-Public Use
  Company Number: B0338116E

PATIENT
  Age: 75 Year
  Sex: Female
  Weight: 73.5 kg

DRUGS (4)
  1. ROSIGLITAZONE [Suspect]
     Route: 048
     Dates: start: 20021120
  2. METFORMIN HCL [Concomitant]
     Dosage: 2550MG PER DAY
     Route: 048
     Dates: start: 20000101
  3. ENALAPRIL MALEATE AND HYDROCHLOROTHIAZIDE [Concomitant]
     Indication: HYPERTENSION
     Dosage: 1TAB TWICE PER DAY
     Route: 048
     Dates: start: 19971101
  4. LIPIDIL [Concomitant]
     Dosage: 1TAB PER DAY
     Route: 048
     Dates: start: 20010101

REACTIONS (13)
  - ANAEMIA [None]
  - CHEST DISCOMFORT [None]
  - CIRCULATORY COLLAPSE [None]
  - DIZZINESS [None]
  - GASTRIC ULCER [None]
  - GASTRITIS EROSIVE [None]
  - HYPERCHLORHYDRIA [None]
  - MITRAL VALVE INCOMPETENCE [None]
  - NON-CARDIAC CHEST PAIN [None]
  - OESOPHAGEAL STENOSIS [None]
  - SUPRAVENTRICULAR TACHYCARDIA [None]
  - TRICUSPID VALVE INCOMPETENCE [None]
  - UNIVENTRICULAR HEART [None]
